FAERS Safety Report 8956743 (Version 1)
Quarter: 2012Q4

REPORT INFORMATION
  Report Type: 
  Country: CO (occurrence: CO)
  Receive Date: 20121211
  Receipt Date: 20121211
  Transmission Date: 20130627
  Serious: Yes (Other)
  Sender: FDA-Public Use
  Company Number: CO-PFIZER INC-2012311505

PATIENT
  Age: 92 Year
  Sex: Female

DRUGS (1)
  1. LYRICA [Suspect]
     Dosage: 75 mg, UNK
     Route: 048
     Dates: start: 2004

REACTIONS (1)
  - Hip fracture [Unknown]
